FAERS Safety Report 12543756 (Version 1)
Quarter: 2016Q3

REPORT INFORMATION
  Report Type: Spontaneous
  Country: US (occurrence: US)
  Receive Date: 20160711
  Receipt Date: 20160711
  Transmission Date: 20161109
  Serious: No
  Sender: FDA-Public Use
  Company Number: US-JAZZ-2016-US-000241

PATIENT
  Age: 7 Year
  Sex: Male

DRUGS (31)
  1. XYREM [Suspect]
     Active Substance: SODIUM OXYBATE
     Indication: NARCOLEPSY
     Dosage: 1 G, BID
     Route: 048
     Dates: start: 201509, end: 201509
  2. CHOLECALCIFEROL [Concomitant]
     Active Substance: CHOLECALCIFEROL
  3. IPRATROPIUM BROMIDE. [Concomitant]
     Active Substance: IPRATROPIUM BROMIDE
  4. OMEPRAZOLE. [Concomitant]
     Active Substance: OMEPRAZOLE
  5. POLYETHYLENE GLYCOL [Concomitant]
     Active Substance: POLYETHYLENE GLYCOLS
  6. REFRESH PLUS [Concomitant]
     Active Substance: CARBOXYMETHYLCELLULOSE SODIUM
  7. XYREM [Suspect]
     Active Substance: SODIUM OXYBATE
     Dosage: 2 G, BID
     Route: 048
     Dates: start: 201510
  8. GLYCOPYRROLATE. [Concomitant]
     Active Substance: GLYCOPYRROLATE
  9. NYSTATIN. [Concomitant]
     Active Substance: NYSTATIN
  10. VSL#3 [Concomitant]
     Active Substance: PROBIOTICS NOS
  11. DIAZEPAM. [Concomitant]
     Active Substance: DIAZEPAM
  12. CETIRIZINE HCL [Concomitant]
     Active Substance: CETIRIZINE HYDROCHLORIDE
  13. MELATONIN [Concomitant]
     Active Substance: MELATONIN
  14. TRIAMCINOLONE [Concomitant]
     Active Substance: TRIAMCINOLONE
  15. DIPHENHYDRAMINE. [Concomitant]
     Active Substance: DIPHENHYDRAMINE
  16. SELENIUM [Concomitant]
     Active Substance: SELENIUM
  17. BACITRACIN W/POLYMYXIN B SULFATE [Concomitant]
  18. IBUPROFEN. [Concomitant]
     Active Substance: IBUPROFEN
  19. TRANSDERM SCOP [Concomitant]
     Active Substance: SCOPOLAMINE
  20. DEPAKOTE [Concomitant]
     Active Substance: DIVALPROEX SODIUM
  21. ACETAMINOPHEN. [Concomitant]
     Active Substance: ACETAMINOPHEN
  22. BETHANECHOL [Concomitant]
     Active Substance: BETHANECHOL
  23. CHLORHEXIDINE [Concomitant]
     Active Substance: CHLORHEXIDINE
  24. SODIUM CHLORIDE. [Concomitant]
     Active Substance: SODIUM CHLORIDE
  25. XYREM [Suspect]
     Active Substance: SODIUM OXYBATE
     Indication: CATAPLEXY
     Dosage: 1.5 G, BID
     Route: 048
     Dates: start: 201509, end: 201510
  26. SCOPOLAMINE HBR [Concomitant]
     Active Substance: SCOPOLAMINE
  27. ALBUTEROL. [Concomitant]
     Active Substance: ALBUTEROL
  28. MIDAZOLAM [Concomitant]
     Active Substance: MIDAZOLAM\MIDAZOLAM HYDROCHLORIDE
  29. KEPPRA [Concomitant]
     Active Substance: LEVETIRACETAM
  30. HYDROXYZINE [Concomitant]
     Active Substance: HYDROXYZINE\HYDROXYZINE HYDROCHLORIDE
  31. RANITIDINE. [Concomitant]
     Active Substance: RANITIDINE

REACTIONS (4)
  - Weight increased [Not Recovered/Not Resolved]
  - Musculoskeletal stiffness [Not Recovered/Not Resolved]
  - Neurodegenerative disorder [Unknown]
  - Muscle spasms [Not Recovered/Not Resolved]

NARRATIVE: CASE EVENT DATE: 201509
